FAERS Safety Report 6182213-4 (Version None)
Quarter: 2009Q2

REPORT INFORMATION
  Report Type: 
  Country: None (occurrence: None)
  Receive Date: 20090504
  Receipt Date: 20090504
  Transmission Date: 20091009
  Serious: Yes (Death)
  Sender: FDA-Public Use
  Company Number: None

PATIENT
  Sex: Male
  Weight: 80 kg

DRUGS (4)
  1. FLUDARABINE PHOSPHATE [Suspect]
     Indication: ACUTE MYELOID LEUKAEMIA
     Dosage: 60MG DAILY IV
     Route: 042
     Dates: start: 20080717, end: 20080721
  2. THIOTEPA [Suspect]
     Dosage: 439MG DAILY IV
     Route: 042
     Dates: start: 20080717, end: 20080718
  3. ANTI-THYMOCYTE GLOBULIN NOS [Concomitant]
  4. TOTAL BODY IRRADIATION [Concomitant]

REACTIONS (10)
  - CULTURE POSITIVE [None]
  - ENDOTRACHEAL INTUBATION COMPLICATION [None]
  - HAEMODYNAMIC INSTABILITY [None]
  - INFLUENZA [None]
  - PNEUMOMEDIASTINUM [None]
  - RENAL FAILURE [None]
  - RESPIRATORY FAILURE [None]
  - SUBCUTANEOUS EMPHYSEMA [None]
  - THROMBOTIC THROMBOCYTOPENIC PURPURA [None]
  - TRACHEAL HAEMORRHAGE [None]
